FAERS Safety Report 8813081 (Version 1)
Quarter: 2012Q4

REPORT INFORMATION
  Report Type: 
  Country: US (occurrence: US)
  Receive Date: 20120927
  Receipt Date: 20120927
  Transmission Date: 20130627
  Serious: No
  Sender: FDA-Public Use
  Company Number: US-AMGEN-USASP2012053065

PATIENT
  Age: 72 Year
  Sex: Female
  Weight: 134.24 kg

DRUGS (8)
  1. PROLIA [Suspect]
     Indication: OSTEOPOROSIS POSTMENOPAUSAL
     Dosage: 60 mg, q6mo
     Route: 058
     Dates: start: 20110921
  2. CALCIUM [Concomitant]
     Dosage: 1500 mg, qd
  3. VITAMIN D [Concomitant]
     Dosage: 2000 IU, qd
  4. WARFARIN [Concomitant]
     Dosage: UNK
  5. NEXIUM [Concomitant]
     Dosage: UNK
  6. LEVOXYL [Concomitant]
     Dosage: UNK
  7. LASIX [Concomitant]
     Dosage: UNK
  8. ATENOLOL [Concomitant]
     Dosage: UNK

REACTIONS (11)
  - Nausea [Not Recovered/Not Resolved]
  - Hypoaesthesia [Unknown]
  - Helicobacter gastritis [Not Recovered/Not Resolved]
  - Neuropathy peripheral [Unknown]
  - Burning sensation [Unknown]
  - Gait disturbance [Unknown]
  - Toothache [Not Recovered/Not Resolved]
  - Polyp [Unknown]
  - Paraesthesia [Unknown]
  - Abdominal pain [Not Recovered/Not Resolved]
  - Pain in extremity [Unknown]
